FAERS Safety Report 5261596-3 (Version None)
Quarter: 2007Q1

REPORT INFORMATION
  Report Type: 
  Country: None (occurrence: None)
  Receive Date: 20070307
  Receipt Date: 20070223
  Transmission Date: 20070707
  Serious: Yes (Death)
  Sender: FDA-Public Use
  Company Number: 2007JP000457

PATIENT
  Age: 90 Year
  Sex: Male
  Weight: 45 kg

DRUGS (9)
  1. VESICARE [Suspect]
     Indication: HYPERTONIC BLADDER
     Dosage: 2.5 MG, UID/QD, ORAL
     Route: 048
     Dates: start: 20070104, end: 20070129
  2. DIGOSIN (DIGOXIN) FORMULATION UNKNOWN [Concomitant]
  3. LASIX [Concomitant]
  4. OMEPRAL FORMULATION UNKNOWN [Concomitant]
  5. SEDIEL (TANDOSPIRONE CITRATE) FORMULATION UNKNOWN [Concomitant]
  6. SIGMART (NOCORANDIL) FORMULATION UNKNOWN [Concomitant]
  7. MERISLON (BETAHISTINE HYDROCHLORIDE) FORMULTION UNKNOWN [Concomitant]
  8. NEO DOPASTON (CARBIDOPA) FORMULATION UNKNOWN [Concomitant]
  9. MEXITIL (MEXILETINE HYDROCHLORIDE) FORMULATION UNKNOWN [Concomitant]

REACTIONS (2)
  - CARDIAC FAILURE [None]
  - MARASMUS [None]
